FAERS Safety Report 8649859 (Version 3)
Quarter: 2012Q4

REPORT INFORMATION
  Report Type: 
  Country: US (occurrence: US)
  Receive Date: 20120705
  Receipt Date: 20121105
  Transmission Date: 20130627
  Serious: Yes (Hospitalization)
  Sender: FDA-Public Use
  Company Number: US-JNJFOC-20120700432

PATIENT
  Sex: Male

DRUGS (4)
  1. STELARA [Suspect]
     Indication: PSORIASIS
     Dosage: every 90 days
     Route: 058
     Dates: start: 20110225, end: 201111
  2. METFORMIN [Concomitant]
     Route: 065
  3. GLYBURIDE [Concomitant]
     Route: 065
  4. SYNTHROID [Concomitant]
     Route: 065

REACTIONS (6)
  - Hypogammaglobulinaemia [Recovering/Resolving]
  - Sepsis [Recovering/Resolving]
  - Pneumonia streptococcal [Recovering/Resolving]
  - Hepatitis B virus test positive [Unknown]
  - Anaemia [Unknown]
  - Infectious pleural effusion [Recovering/Resolving]
